FAERS Safety Report 4693277-9 (Version None)
Quarter: 2005Q2

REPORT INFORMATION
  Report Type: 
  Country: None (occurrence: None)
  Receive Date: 20050617
  Receipt Date: 20050512
  Transmission Date: 20051028
  Serious: Yes (Other)
  Sender: FDA-Public Use
  Company Number: US-GLAXOSMITHKLINE-A0558376A

PATIENT
  Age: 26 Year
  Sex: Female
  Weight: 57.3 kg

DRUGS (5)
  1. WELLBUTRIN [Suspect]
     Indication: ILL-DEFINED DISORDER
     Dosage: 450MG PER DAY
     Route: 048
     Dates: start: 20040101, end: 20050325
  2. CRACK COCAINE [Suspect]
  3. ALCOHOL [Suspect]
  4. VALIUM [Concomitant]
  5. XANAX [Concomitant]
     Dosage: 1MG TWICE PER DAY

REACTIONS (10)
  - EATING DISORDER [None]
  - EMOTIONAL DISORDER [None]
  - FLIGHT OF IDEAS [None]
  - GRAND MAL CONVULSION [None]
  - INCONTINENCE [None]
  - LOGORRHOEA [None]
  - OVERDOSE [None]
  - STRESS [None]
  - TEARFULNESS [None]
  - TONGUE BITING [None]
